FAERS Safety Report 10273002 (Version 1)
Quarter: 2014Q3

REPORT INFORMATION
  Report Type: Spontaneous
  Country: CH (occurrence: CH)
  Receive Date: 20140702
  Receipt Date: 20140702
  Transmission Date: 20150326
  Serious: Yes (Hospitalization)
  Sender: FDA-Public Use
  Company Number: CH-BAYER-2014-092289

PATIENT
  Age: 88 Year
  Sex: Female

DRUGS (6)
  1. SYMBICORT [Concomitant]
     Active Substance: BUDESONIDE\FORMOTEROL FUMARATE DIHYDRATE
     Indication: BRONCHIECTASIS
     Dosage: 1 DF, QID
     Route: 055
  2. LASIX [Suspect]
     Active Substance: FUROSEMIDE
     Indication: HYPERTENSIVE CARDIOMYOPATHY
     Dosage: 125 MG, UNK
     Route: 048
     Dates: end: 201405
  3. ASPIRIN CARDIO [Suspect]
     Active Substance: ASPIRIN
     Indication: ESSENTIAL THROMBOCYTHAEMIA
     Dosage: 100 MG, QD
     Route: 048
     Dates: end: 201405
  4. AMLODIPIN [Concomitant]
     Active Substance: AMLODIPINE BESYLATE
     Indication: HYPERTENSIVE CARDIOMYOPATHY
     Dosage: 0.5 MG, QD
     Route: 048
  5. NEPHROTRANS [Concomitant]
     Indication: RENAL FAILURE CHRONIC
     Dosage: 500 MG, BID
     Route: 048
  6. NASONEX [Concomitant]
     Active Substance: MOMETASONE FUROATE
     Indication: PRODUCT USED FOR UNKNOWN INDICATION
     Dosage: PRN
     Route: 045

REACTIONS (6)
  - Glomerulonephritis acute [Recovering/Resolving]
  - Arthralgia [Unknown]
  - Hypersensitivity vasculitis [Not Recovered/Not Resolved]
  - Oedema peripheral [Not Recovered/Not Resolved]
  - Purpura [Not Recovered/Not Resolved]
  - Renal failure acute [Recovering/Resolving]

NARRATIVE: CASE EVENT DATE: 201404
